FAERS Safety Report 18431141 (Version 1)
Quarter: 2020Q4

REPORT INFORMATION
  Report Type: Spontaneous
  Country: US (occurrence: US)
  Receive Date: 20201027
  Receipt Date: 20201027
  Transmission Date: 20210114
  Serious: Yes (Hospitalization)
  Sender: FDA-Public Use
  Company Number: None

PATIENT
  Age: 73 Year
  Sex: Male
  Weight: 91 kg

DRUGS (3)
  1. ASPIRIN (ASPIRIN 81MG TAB, EC) [Suspect]
     Active Substance: ASPIRIN
     Indication: CARDIOVASCULAR DISORDER
     Route: 048
     Dates: start: 20171113
  2. RIVAROXABAN (RIVAROXABAN 20MG TAB) [Suspect]
     Active Substance: RIVAROXABAN
     Indication: ATRIAL FIBRILLATION
     Route: 048
     Dates: start: 20190812
  3. ASPIRIN (ASPIRIN 81MG TAB, EC) [Suspect]
     Active Substance: ASPIRIN
     Indication: VASCULAR OPERATION
     Route: 048
     Dates: start: 20171113

REACTIONS (3)
  - Anaemia [None]
  - Haemorrhage [None]
  - Gastric haemorrhage [None]

NARRATIVE: CASE EVENT DATE: 20200708
